FAERS Safety Report 12413548 (Version 2)
Quarter: 2016Q2

REPORT INFORMATION
  Report Type: Report from Study
  Country: KR (occurrence: KR)
  Receive Date: 20160527
  Receipt Date: 20160607
  Transmission Date: 20160815
  Serious: Yes (Hospitalization)
  Sender: FDA-Public Use
  Company Number: US-ASTRAZENECA-2016SE55987

PATIENT
  Age: 64 Year
  Sex: Female
  Weight: 37 kg

DRUGS (24)
  1. DAXAS [Suspect]
     Active Substance: ROFLUMILAST
     Indication: CHRONIC OBSTRUCTIVE PULMONARY DISEASE
     Dosage: 500 ???G, QD
     Route: 048
     Dates: start: 20130926, end: 20131018
  2. ZOLMIN [Concomitant]
     Indication: INSOMNIA
     Dosage: 0.25MG UNKNOWN
     Route: 048
     Dates: start: 20091207
  3. SINGULAIR [Concomitant]
     Active Substance: MONTELUKAST SODIUM
     Indication: CHRONIC OBSTRUCTIVE PULMONARY DISEASE
     Dosage: 10.0MG UNKNOWN
     Route: 048
     Dates: start: 20100927
  4. AXIMAD [Concomitant]
     Indication: CHRONIC OBSTRUCTIVE PULMONARY DISEASE
     Dosage: 800.0MG UNKNOWN
     Route: 048
     Dates: start: 20130702
  5. ADCAL [Concomitant]
     Active Substance: CALCIUM CARBONATE
     Indication: OSTEOPOROSIS
     Dosage: 2 T
     Route: 048
     Dates: start: 20110906
  6. CRAVIT [Concomitant]
     Active Substance: LEVOFLOXACIN
     Indication: CYSTITIS
     Dosage: 750.0MG UNKNOWN
     Route: 048
     Dates: start: 20130702
  7. DAXAS [Suspect]
     Active Substance: ROFLUMILAST
     Indication: CHRONIC OBSTRUCTIVE PULMONARY DISEASE
     Dosage: 500 ???G, QD
     Route: 048
     Dates: start: 20130702, end: 20130901
  8. DAXAS [Suspect]
     Active Substance: ROFLUMILAST
     Indication: CHRONIC OBSTRUCTIVE PULMONARY DISEASE
     Dosage: 500 ???G, QD
     Route: 048
     Dates: start: 20131204
  9. METHYLON [Concomitant]
     Active Substance: METHYLPREDNISOLONE
     Indication: CHRONIC OBSTRUCTIVE PULMONARY DISEASE
     Dosage: 6.0MG UNKNOWN
     Route: 048
     Dates: start: 20130502
  10. PROGESTERON DEPO [Concomitant]
     Indication: LYMPHANGIOLEIOMYOMATOSIS
     Dosage: 500.0ML UNKNOWN
     Route: 030
     Dates: start: 20091022
  11. SERETIDE [Concomitant]
     Active Substance: FLUTICASONE PROPIONATE\SALMETEROL XINAFOATE
     Indication: CHRONIC OBSTRUCTIVE PULMONARY DISEASE
     Dosage: 2 PUFF INHALATION
     Dates: start: 20080124
  12. BAMBEC [Concomitant]
     Active Substance: BAMBUTEROL HYDROCHLORIDE
     Indication: CHRONIC OBSTRUCTIVE PULMONARY DISEASE
     Dosage: 10.0MG UNKNOWN
     Route: 048
     Dates: start: 20081106
  13. DAXAS [Suspect]
     Active Substance: ROFLUMILAST
     Indication: CHRONIC OBSTRUCTIVE PULMONARY DISEASE
     Dosage: 500 ???G, QD
     Route: 048
     Dates: start: 20130907, end: 20130922
  14. BERASIL [Concomitant]
     Active Substance: BERAPROST
     Indication: PERIPHERAL VASCULAR DISORDER
     Dosage: 40.0MG UNKNOWN
     Route: 048
     Dates: start: 20130404
  15. DAXAS [Suspect]
     Active Substance: ROFLUMILAST
     Indication: CHRONIC OBSTRUCTIVE PULMONARY DISEASE
     Dosage: 500 ???G, QD
     Route: 048
     Dates: start: 20131123, end: 20131129
  16. GELOMYRTOL FORTE [Concomitant]
     Active Substance: HERBALS
     Indication: CHRONIC OBSTRUCTIVE PULMONARY DISEASE
     Dosage: 600.0MG UNKNOWN
     Route: 048
     Dates: start: 20130421
  17. SPIRIVA RESPIMAT [Concomitant]
     Active Substance: TIOTROPIUM BROMIDE
     Indication: CHRONIC OBSTRUCTIVE PULMONARY DISEASE
     Dosage: 2 PUFF INHALATION
     Dates: start: 20130307
  18. ELROTON [Concomitant]
     Indication: CARDIAC FAILURE
     Dosage: 20.0MG UNKNOWN
     Route: 048
     Dates: start: 20100315
  19. DIABEX [Concomitant]
     Active Substance: METFORMIN HYDROCHLORIDE
     Indication: DIABETES MELLITUS
     Dosage: 500.0MG UNKNOWN
     Route: 048
     Dates: start: 20100927
  20. DIGOSIN [Concomitant]
     Active Substance: DIGOXIN
     Indication: CARDIAC FAILURE
     Dosage: 0.125MG UNKNOWN
     Route: 048
     Dates: start: 20090630
  21. DAXAS [Suspect]
     Active Substance: ROFLUMILAST
     Indication: CHRONIC OBSTRUCTIVE PULMONARY DISEASE
     Dosage: 500 ???G, QD
     Route: 048
     Dates: start: 20131107, end: 20131117
  22. OMACOR [Concomitant]
     Active Substance: OMEGA-3-ACID ETHYL ESTERS
     Indication: HYPERCHOLESTEROLAEMIA
     Dosage: 4 CAPSULE
     Route: 048
     Dates: start: 20110324
  23. VESICARE [Concomitant]
     Active Substance: SOLIFENACIN SUCCINATE
     Indication: CYSTITIS
     Dosage: 10.0MG UNKNOWN
     Route: 048
     Dates: start: 20130702
  24. TANATRIL TAB [Concomitant]
     Indication: CARDIAC FAILURE
     Dosage: 2.5MG UNKNOWN
     Route: 048
     Dates: start: 20090730

REACTIONS (6)
  - Chest pain [Recovered/Resolved with Sequelae]
  - Dysuria [Recovered/Resolved with Sequelae]
  - Nausea [Recovered/Resolved with Sequelae]
  - Benign renal neoplasm [Recovered/Resolved with Sequelae]
  - Dyspnoea [Recovered/Resolved with Sequelae]
  - Abdominal pain upper [Recovered/Resolved with Sequelae]

NARRATIVE: CASE EVENT DATE: 20130704
